FAERS Safety Report 10177564 (Version 2)
Quarter: 2014Q2

REPORT INFORMATION
  Report Type: Spontaneous
  Country: US (occurrence: US)
  Receive Date: 20140516
  Receipt Date: 20140606
  Transmission Date: 20141212
  Serious: No
  Sender: FDA-Public Use
  Company Number: US-PFIZER INC-2014131975

PATIENT
  Age: 57 Year
  Sex: Female

DRUGS (2)
  1. PREMPRO [Suspect]
     Dosage: 1 DF, 1X/DAY [CONJUGATED ESTROGENS 0.625 MG / MEDROXYPROGESTERONE ACETATE 2.5 MG; TABS]
     Route: 048
  2. EXCEDRIN MIGRAINE [Concomitant]
     Dosage: UNK

REACTIONS (2)
  - Dysphonia [Unknown]
  - Crying [Unknown]
